FAERS Safety Report 9292953 (Version 2)
Quarter: 2013Q2

REPORT INFORMATION
  Report Type: Spontaneous
  Country: US (occurrence: None)
  Receive Date: 20130513
  Receipt Date: 20130521
  Transmission Date: 20140414
  Serious: Yes (Other)
  Sender: FDA-Public Use
  Company Number: 2013P1005366

PATIENT
  Age: 71 Year
  Sex: Female

DRUGS (2)
  1. PREDNISONE [Suspect]
     Dates: start: 201101
  2. PREDNISONE [Suspect]
     Dates: start: 201101

REACTIONS (3)
  - Surgery [None]
  - Vision blurred [None]
  - Visual acuity reduced [None]
